FAERS Safety Report 25246280 (Version 1)
Quarter: 2025Q2

REPORT INFORMATION
  Report Type: Spontaneous
  Country: US (occurrence: None)
  Receive Date: 20250424
  Receipt Date: 20250424
  Transmission Date: 20250716
  Serious: No
  Sender: FDA-CTU
  Company Number: None

PATIENT

DRUGS (1)
  1. TIZANIDINE [Suspect]
     Active Substance: TIZANIDINE

REACTIONS (3)
  - Breast mass [None]
  - Breast discharge [None]
  - Purulent discharge [None]
